FAERS Safety Report 24750766 (Version 1)
Quarter: 2024Q4

REPORT INFORMATION
  Report Type: Spontaneous
  Country: PL (occurrence: None)
  Receive Date: 20241218
  Receipt Date: 20241218
  Transmission Date: 20250114
  Serious: Yes (Other)
  Sender: ENCUBE ETHICALS
  Company Number: PL-Encube-001464

PATIENT
  Age: 43 Year
  Sex: Male

DRUGS (1)
  1. TRIAMCINOLONE ACETONIDE [Suspect]
     Active Substance: TRIAMCINOLONE ACETONIDE
     Indication: Macular oedema
     Dosage: 4 MG/0.1 ML INJECTION

REACTIONS (2)
  - Central serous chorioretinopathy [Recovered/Resolved]
  - Off label use [Unknown]
